FAERS Safety Report 13177121 (Version 1)
Quarter: 2017Q1

REPORT INFORMATION
  Report Type: Report from Study
  Country: US (occurrence: US)
  Receive Date: 20170201
  Receipt Date: 20170201
  Transmission Date: 20170428
  Serious: No
  Sender: FDA-Public Use
  Company Number: US-EXELIXIS-CABO-16007122

PATIENT
  Age: 61 Year
  Sex: Female

DRUGS (7)
  1. XANAX [Concomitant]
     Active Substance: ALPRAZOLAM
  2. METOPROLOL. [Concomitant]
     Active Substance: METOPROLOL
  3. LEVOTHYROXINE. [Concomitant]
     Active Substance: LEVOTHYROXINE
  4. LISINOPRIL. [Concomitant]
     Active Substance: LISINOPRIL
  5. OXYCONTIN [Concomitant]
     Active Substance: OXYCODONE HYDROCHLORIDE
  6. STOOL SOFTENER (DOCUSATE CALCIUM) [Concomitant]
     Active Substance: DOCUSATE CALCIUM
  7. CABOMETYX [Suspect]
     Active Substance: CABOZANTINIB S-MALATE
     Indication: RENAL CANCER
     Dosage: 40 MG, QD
     Route: 048
     Dates: start: 20160707, end: 20160915

REACTIONS (5)
  - Bruxism [Unknown]
  - Vision blurred [Unknown]
  - Headache [Unknown]
  - Hypertension [Unknown]
  - Tumour pain [Unknown]

NARRATIVE: CASE EVENT DATE: 20160915
